FAERS Safety Report 10668729 (Version 1)
Quarter: 2014Q4

REPORT INFORMATION
  Report Type: Spontaneous
  Country: US (occurrence: US)
  Receive Date: 20141222
  Receipt Date: 20141222
  Transmission Date: 20150529
  Serious: No
  Sender: FDA-Public Use
  Company Number: US-PFIZER INC-2014350134

PATIENT
  Sex: Female

DRUGS (2)
  1. IBUPROFEN. [Suspect]
     Active Substance: IBUPROFEN
     Dosage: 800 MG, UNK
  2. MOTRIN [Suspect]
     Active Substance: IBUPROFEN
     Dosage: 800 MG, UNK

REACTIONS (2)
  - Gastric disorder [Unknown]
  - Abdominal discomfort [Unknown]
